FAERS Safety Report 15917351 (Version 1)
Quarter: 2019Q1

REPORT INFORMATION
  Report Type: Spontaneous
  Country: US (occurrence: US)
  Receive Date: 20190205
  Receipt Date: 20190205
  Transmission Date: 20190417
  Serious: Yes (Hospitalization)
  Sender: FDA-Public Use
  Company Number: US-GW PHARMA-201901USGW0152

PATIENT

DRUGS (3)
  1. EPIDIOLEX [Suspect]
     Active Substance: CANNABIDIOL
     Dosage: 150 MILLIGRAM, BID
     Route: 065
     Dates: start: 20190113, end: 20190120
  2. EPIDIOLEX [Suspect]
     Active Substance: CANNABIDIOL
     Dosage: 175 MILLIGRAM, BID
     Route: 065
     Dates: start: 20190121
  3. EPIDIOLEX [Suspect]
     Active Substance: CANNABIDIOL
     Indication: LENNOX-GASTAUT SYNDROME
     Dosage: 75 MILLIGRAM, BID
     Route: 065
     Dates: start: 20190105, end: 20190112

REACTIONS (5)
  - Fluid intake reduced [Unknown]
  - Dehydration [Unknown]
  - Hypophagia [Unknown]
  - Hypersomnia [Unknown]
  - Vomiting [Recovered/Resolved]

NARRATIVE: CASE EVENT DATE: 201901
